FAERS Safety Report 10248887 (Version 3)
Quarter: 2014Q3

REPORT INFORMATION
  Report Type: Spontaneous
  Country: US (occurrence: US)
  Receive Date: 20140620
  Receipt Date: 20140811
  Transmission Date: 20150326
  Serious: Yes (Hospitalization, Congenital Anomaly, Other)
  Sender: FDA-Public Use
  Company Number: US-JNJFOC-20140612372

PATIENT
  Sex: Female

DRUGS (1)
  1. TOPAMAX [Suspect]
     Active Substance: TOPIRAMATE
     Indication: EPILEPSY
     Dosage: MOTHER^S DOSING
     Route: 064
     Dates: start: 2003, end: 2010

REACTIONS (7)
  - Cleft uvula [Unknown]
  - Premature baby [Unknown]
  - Microcephaly [Unknown]
  - Foetal exposure during pregnancy [Recovered/Resolved]
  - Otitis media chronic [Unknown]
  - Cleft palate [Recovered/Resolved]
  - Foetal growth restriction [Unknown]
